FAERS Safety Report 5018754-2 (Version None)
Quarter: 2006Q2

REPORT INFORMATION
  Report Type: 
  Country: None (occurrence: None)
  Receive Date: 20060525
  Receipt Date: 20060510
  Transmission Date: 20061013
  Serious: Yes (Other)
  Sender: FDA-Public Use
  Company Number: B0424323A

PATIENT
  Sex: Male

DRUGS (1)
  1. PAROXETINE HYDROCHLORIDE (PAROXETINE HYDROCHLORIDE) (GENERIC) [Suspect]
     Indication: ANTIDEPRESSANT THERAPY

REACTIONS (3)
  - AFFECT LABILITY [None]
  - AGGRESSION [None]
  - DISINHIBITION [None]
